FAERS Safety Report 9173732 (Version 2)
Quarter: 2013Q3

REPORT INFORMATION
  Report Type: Spontaneous
  Country: US (occurrence: None)
  Receive Date: 20130314
  Receipt Date: 20130815
  Transmission Date: 20140515
  Serious: Yes (Other)
  Sender: FDA-Public Use
  Company Number: ADR-2012-00869

PATIENT
  Sex: Female

DRUGS (1)
  1. LIORESAL INTRATHECAL (BACLOFEN INJECTION) [Suspect]
     Indication: MUSCLE SPASTICITY

REACTIONS (8)
  - Hypertension [None]
  - Erythema [None]
  - Local swelling [None]
  - Sensory loss [None]
  - Drug ineffective [None]
  - Gait disturbance [None]
  - Walking aid user [None]
  - Hypoaesthesia [None]
